FAERS Safety Report 17045299 (Version 1)
Quarter: 2019Q4

REPORT INFORMATION
  Report Type: Spontaneous
  Country: US (occurrence: US)
  Receive Date: 20191118
  Receipt Date: 20191118
  Transmission Date: 20200122
  Serious: No
  Sender: FDA-Public Use
  Company Number: US-AMAG PHARMACEUTICALS, INC.-AMAG201905984

PATIENT
  Age: 57 Year
  Sex: Female
  Weight: 75.82 kg

DRUGS (17)
  1. INTRAROSA [Suspect]
     Active Substance: PRASTERONE
     Indication: DYSPAREUNIA
  2. FLAXSEED [Concomitant]
     Active Substance: FLAX SEED
     Dosage: 1200 MG TWICE DAILY.
  3. ESTRADIOL. [Concomitant]
     Active Substance: ESTRADIOL
     Indication: PRODUCT USED FOR UNKNOWN INDICATION
     Dosage: DAILY
  4. CENTRUM SILVER [Concomitant]
     Active Substance: MINERALS\VITAMINS
     Dosage: DAILY.
  5. LOSARTAN/HCTZ [Concomitant]
     Active Substance: HYDROCHLOROTHIAZIDE\LOSARTAN
     Indication: HYPERTENSION
  6. PROGESTERONE. [Concomitant]
     Active Substance: PROGESTERONE
     Dosage: 200MG DAILY.
  7. LATANOPROST EYE DROPS [Concomitant]
     Active Substance: LATANOPROST
     Dosage: 125 MCG DAILY.
  8. OMEPRAZOLE. [Concomitant]
     Active Substance: OMEPRAZOLE
     Dosage: 40 MG DAILY.
  9. OMEPRAZOLE. [Concomitant]
     Active Substance: OMEPRAZOLE
     Indication: GASTROOESOPHAGEAL REFLUX DISEASE
     Dosage: 40MG DAILY
  10. PROGESTERONE. [Concomitant]
     Active Substance: PROGESTERONE
     Indication: PRODUCT USED FOR UNKNOWN INDICATION
     Dosage: 200MG DAILY
  11. INTRAROSA [Suspect]
     Active Substance: PRASTERONE
     Indication: VULVOVAGINAL DRYNESS
     Route: 067
  12. ESTOFEX ADVANCE [Concomitant]
     Dosage: DAILY
  13. FLAXSEED [Concomitant]
     Active Substance: FLAX SEED
     Indication: PRODUCT USED FOR UNKNOWN INDICATION
     Dosage: 1200MG TWICE DAILY
  14. LOSARTAN/HCTZ [Concomitant]
     Active Substance: HYDROCHLOROTHIAZIDE\LOSARTAN
     Dosage: DAILY.
  15. ESTRADIOL. [Concomitant]
     Active Substance: ESTRADIOL
     Dosage: DAILY.
  16. LATANOPROST EYE DROPS [Concomitant]
     Active Substance: LATANOPROST
     Indication: BORDERLINE GLAUCOMA
     Dosage: 125MCG DAILY
  17. CENTRUM SILVER [Concomitant]
     Active Substance: MINERALS\VITAMINS
     Indication: SUPPLEMENTATION THERAPY
     Dosage: DAILY

REACTIONS (2)
  - Off label use [Unknown]
  - Application site discharge [Recovered/Resolved]

NARRATIVE: CASE EVENT DATE: 20191113
